FAERS Safety Report 4989047-4 (Version None)
Quarter: 2006Q2

REPORT INFORMATION
  Report Type: 
  Country: None (occurrence: None)
  Receive Date: 20060425
  Receipt Date: 20060416
  Transmission Date: 20061013
  Serious: Yes (Other)
  Sender: FDA-Public Use
  Company Number: 2006051722

PATIENT
  Age: 52 Year
  Sex: Male

DRUGS (11)
  1. LIPITOR [Suspect]
     Indication: BLOOD CHOLESTEROL INCREASED
     Dosage: 80 MG (80  MG, 1 IN 1 D)
     Dates: start: 20030101, end: 20060101
  2. VIAGRA [Suspect]
     Indication: ERECTILE DYSFUNCTION
     Dosage: 50 MG, INTERVAL:   PRN
     Dates: start: 20050101
  3. CAVERJECT [Suspect]
     Indication: ERECTILE DYSFUNCTION
     Dosage: 20 MCG, INTERVAL: PRN, SUBCUTANEOUS
     Route: 058
     Dates: start: 20060101
  4. WELLBUTRIN [Suspect]
     Indication: ILL-DEFINED DISORDER
  5. LEVITRA [Suspect]
     Indication: ERECTILE DYSFUNCTION
  6. CIALIS [Suspect]
     Indication: ERECTILE DYSFUNCTION
  7. FOLIC ACID [Concomitant]
  8. GLYBURIDE [Concomitant]
  9. ACTOS [Concomitant]
  10. REQUIP [Concomitant]
  11. METFORMIN [Concomitant]

REACTIONS (11)
  - CEREBROVASCULAR ACCIDENT [None]
  - DRUG EFFECT DECREASED [None]
  - DRUG INEFFECTIVE [None]
  - ERECTILE DYSFUNCTION [None]
  - ERECTION INCREASED [None]
  - FEELING ABNORMAL [None]
  - HEADACHE [None]
  - HYPERTENSION [None]
  - PHARMACEUTICAL PRODUCT COMPLAINT [None]
  - RESTLESS LEGS SYNDROME [None]
  - THERAPY NON-RESPONDER [None]
